FAERS Safety Report 26110131 (Version 1)
Quarter: 2025Q4

REPORT INFORMATION
  Report Type: Spontaneous
  Country: CA (occurrence: CA)
  Receive Date: 20251201
  Receipt Date: 20251201
  Transmission Date: 20260117
  Serious: Yes (Hospitalization)
  Sender: SANDOZ
  Company Number: CA-SANDOZ-SDZ2025CA089514

PATIENT
  Age: 3 Year
  Sex: Female

DRUGS (1)
  1. ZOLEDRONIC ACID [Suspect]
     Active Substance: ZOLEDRONIC ACID
     Indication: Osteoporosis
     Dosage: 140 UG, ONCE/SINGLE
     Route: 042

REACTIONS (2)
  - Blood calcium decreased [Recovering/Resolving]
  - Status epilepticus [Recovering/Resolving]
